FAERS Safety Report 16081191 (Version 1)
Quarter: 2019Q1

REPORT INFORMATION
  Report Type: Spontaneous
  Country: US (occurrence: US)
  Receive Date: 20190316
  Receipt Date: 20190316
  Transmission Date: 20190418
  Serious: No
  Sender: FDA-Public Use
  Company Number: US-TEVA-2019-US-1016086

PATIENT
  Sex: Female

DRUGS (2)
  1. MONTELUKAST SODIUM TABLET [Suspect]
     Active Substance: MONTELUKAST SODIUM
     Indication: HYPERSENSITIVITY
     Route: 065
  2. MONTELUKAST SODIUM TABLET TEVA [Suspect]
     Active Substance: MONTELUKAST SODIUM
     Indication: HYPERSENSITIVITY
     Route: 065

REACTIONS (3)
  - Rash [Unknown]
  - Drug ineffective [Unknown]
  - Product use in unapproved indication [Unknown]
